FAERS Safety Report 23693892 (Version 4)
Quarter: 2024Q2

REPORT INFORMATION
  Report Type: Spontaneous
  Country: GB (occurrence: GB)
  Receive Date: 20240401
  Receipt Date: 20240508
  Transmission Date: 20240716
  Serious: Yes (Other)
  Sender: FDA-Public Use
  Company Number: GB-ROCHE-2729221

PATIENT
  Age: 72 Year
  Sex: Female
  Weight: 62 kg

DRUGS (186)
  1. BENDAMUSTINE [Suspect]
     Active Substance: BENDAMUSTINE
     Indication: Product used for unknown indication
     Dosage: UNK
     Route: 065
  2. BENDAMUSTINE [Suspect]
     Active Substance: BENDAMUSTINE
     Dosage: UNK
     Route: 065
  3. CYCLOPHOSPHAMIDE [Suspect]
     Active Substance: CYCLOPHOSPHAMIDE
     Indication: Diffuse large B-cell lymphoma
     Dosage: TOTAL VOLUME PRIOR AE 313 ML, DATE OF MOST RECENT DOSE PRIOR TO FIRST EPISODE OF NEUTROPENIA 24/N...
     Route: 050
     Dates: start: 20201124
  4. CYCLOPHOSPHAMIDE [Suspect]
     Active Substance: CYCLOPHOSPHAMIDE
     Dosage: UNK
     Route: 065
  5. CYCLOPHOSPHAMIDE [Suspect]
     Active Substance: CYCLOPHOSPHAMIDE
     Dosage: UNK; ;
     Route: 050
  6. CYCLOPHOSPHAMIDE [Suspect]
     Active Substance: CYCLOPHOSPHAMIDE
     Dosage: UNK
     Route: 065
  7. CYCLOPHOSPHAMIDE [Suspect]
     Active Substance: CYCLOPHOSPHAMIDE
     Dosage: UNK; ;
     Route: 050
  8. CYCLOPHOSPHAMIDE [Suspect]
     Active Substance: CYCLOPHOSPHAMIDE
     Dosage: UNK
     Route: 065
  9. CYCLOPHOSPHAMIDE [Suspect]
     Active Substance: CYCLOPHOSPHAMIDE
     Dosage: UNK; ;
     Route: 050
  10. CYCLOPHOSPHAMIDE [Suspect]
     Active Substance: CYCLOPHOSPHAMIDE
     Dosage: UNK
     Route: 065
  11. CYCLOPHOSPHAMIDE [Suspect]
     Active Substance: CYCLOPHOSPHAMIDE
     Dosage: UNK; ;
     Route: 050
  12. DOXORUBICIN HYDROCHLORIDE [Suspect]
     Active Substance: DOXORUBICIN HYDROCHLORIDE
     Indication: Diffuse large B-cell lymphoma
     Dosage: 50 MG/M2, TIW (DATE OF MOST RECENT DOSE PRIOR TO FIRST EPISODE OF NEUTROPENIA (TOTAL VOLUME 40 ML...
     Route: 050
     Dates: start: 20201124
  13. DOXORUBICIN [Suspect]
     Active Substance: DOXORUBICIN
     Indication: Diffuse large B-cell lymphoma
     Dosage: ON DAY 1 OF EACH 21-DAY CYCLE DATE OF MOST RECENT DOSE PRIOR TO FIRST EPISODE OF NEUTROPENIA (TOT...
     Route: 042
     Dates: start: 20201124
  14. DOXORUBICIN [Suspect]
     Active Substance: DOXORUBICIN
     Dosage: UNK
     Route: 042
  15. DOXORUBICIN [Suspect]
     Active Substance: DOXORUBICIN
     Dosage: UNK; ;
     Route: 042
  16. DOXORUBICIN [Suspect]
     Active Substance: DOXORUBICIN
     Dosage: UNK
     Route: 042
  17. DOXORUBICIN [Suspect]
     Active Substance: DOXORUBICIN
     Dosage: UNK
     Route: 042
  18. DOXORUBICIN [Suspect]
     Active Substance: DOXORUBICIN
     Dosage: UNK
     Route: 042
  19. DOXORUBICIN [Suspect]
     Active Substance: DOXORUBICIN
     Dosage: UNK; ;
     Route: 042
  20. DOXORUBICIN [Suspect]
     Active Substance: DOXORUBICIN
     Dosage: UNK
     Route: 042
  21. DOXORUBICIN [Suspect]
     Active Substance: DOXORUBICIN
     Dosage: UNK; ;
     Route: 042
  22. GLOFITAMAB [Suspect]
     Active Substance: GLOFITAMAB
     Route: 050
  23. GLOFITAMAB [Suspect]
     Active Substance: GLOFITAMAB
     Indication: Diffuse large B-cell lymphoma
     Route: 065
  24. GLOFITAMAB [Suspect]
     Active Substance: GLOFITAMAB
     Dosage: UNK
     Route: 065
  25. GLOFITAMAB [Suspect]
     Active Substance: GLOFITAMAB
     Dosage: UNK; ;
     Route: 050
  26. GLOFITAMAB [Suspect]
     Active Substance: GLOFITAMAB
     Dosage: UNK
     Route: 065
  27. GLOFITAMAB [Suspect]
     Active Substance: GLOFITAMAB
     Dosage: UNK; ;
     Route: 050
  28. GLOFITAMAB [Suspect]
     Active Substance: GLOFITAMAB
     Dosage: THE MOST RECENT DOSE OF RO7082859 (10 MG) WAS ADMINISTERED ON 30/DEC/2020 AT 1:30 PM TOTAL VOLUME...
     Route: 065
     Dates: start: 20201222
  29. GLOFITAMAB [Suspect]
     Active Substance: GLOFITAMAB
     Dosage: UNK
     Route: 065
  30. GLOFITAMAB [Suspect]
     Active Substance: GLOFITAMAB
     Dosage: UNK; ;
     Route: 050
  31. PREDNISOLONE [Suspect]
     Active Substance: PREDNISOLONE
     Indication: Product used for unknown indication
     Dosage: DATE OF MOST RECENT DOSE PRIOR TO FIRST EPISODE OF NEUTROPENIA 24/NOV/2020.DATE OF MOST RECENT D...
     Route: 048
     Dates: start: 20201124
  32. PREDNISOLONE [Suspect]
     Active Substance: PREDNISOLONE
     Indication: Product used for unknown indication
     Dosage: DATE OF MOST RECENT DOSE PRIOR TO FIRST EPISODE OF NEUTROPENIA 24/NOV/2020. DATE OF MOST RECENT D...
     Route: 050
     Dates: start: 20201124
  33. PREDNISOLONE [Suspect]
     Active Substance: PREDNISOLONE
     Dosage: UNK ROUTE OF ADMIN (FREE TEXT): UNKNOWN ROUTE
     Route: 065
     Dates: start: 20201118, end: 20201122
  34. PREDNISOLONE [Suspect]
     Active Substance: PREDNISOLONE
     Dosage: UNK ROUTE OF ADMIN (FREE TEXT): UNKNOWN ROUTE
     Route: 065
     Dates: start: 20201118, end: 20201122
  35. PREDNISOLONE [Suspect]
     Active Substance: PREDNISOLONE
     Dosage: UNK ROUTE OF ADMIN (FREE TEXT): UNKNOWN ROUTE
     Route: 065
  36. PREDNISOLONE [Suspect]
     Active Substance: PREDNISOLONE
     Dosage: UNK ROUTE OF ADMIN (FREE TEXT): UNKNOWN ROUTE
     Route: 065
  37. PREDNISOLONE [Suspect]
     Active Substance: PREDNISOLONE
     Indication: Diffuse large B-cell lymphoma
     Dosage: UNK; ;
     Route: 050
     Dates: start: 20201118, end: 20201122
  38. PREDNISOLONE [Suspect]
     Active Substance: PREDNISOLONE
     Dosage: 100 MG, DATE OF MOST RECENT DOSE PRIOR TO FIRST EPISODE OF NEUTROPENIA 24/NOV/202. DATE OF MOST RECE
     Route: 048
     Dates: start: 20201124
  39. PREDNISOLONE [Suspect]
     Active Substance: PREDNISOLONE
     Indication: Product used for unknown indication
     Dosage: UNK
     Route: 065
     Dates: start: 20201118, end: 20201122
  40. PREDNISOLONE [Suspect]
     Active Substance: PREDNISOLONE
     Dosage: UNKUNK
     Route: 048
     Dates: start: 20201118, end: 20201122
  41. PREDNISOLONE [Suspect]
     Active Substance: PREDNISOLONE
     Dosage: UNKUNK
     Route: 065
     Dates: start: 20201118, end: 20201122
  42. RITUXIMAB [Suspect]
     Active Substance: RITUXIMAB
     Dosage: UNK
     Route: 065
  43. RITUXIMAB [Suspect]
     Active Substance: RITUXIMAB
     Dosage: UNK; ;
     Route: 050
  44. RITUXIMAB [Suspect]
     Active Substance: RITUXIMAB
     Dosage: UNK
     Route: 065
  45. RITUXIMAB [Suspect]
     Active Substance: RITUXIMAB
     Dosage: UNK; ;
     Route: 050
  46. RITUXIMAB [Suspect]
     Active Substance: RITUXIMAB
     Dosage: DURATION: 1 DAY; TIME INTERVAL: 0.33 WK
     Route: 050
     Dates: start: 20201221, end: 20201221
  47. RITUXIMAB [Suspect]
     Active Substance: RITUXIMAB
     Dosage: DURATION: 1 DAY; TIME INTERVAL: 0.33 WK
     Route: 050
     Dates: start: 20210216, end: 20210216
  48. RITUXIMAB [Suspect]
     Active Substance: RITUXIMAB
     Dosage: 600 MG, TIW; TIME INTERVAL: 0.33 WK
     Route: 050
     Dates: start: 20210105, end: 20210216
  49. RITUXIMAB [Suspect]
     Active Substance: RITUXIMAB
     Indication: Diffuse large B-cell lymphoma
     Dosage: TOTAL VOLUME PRIOR AE 560 ML DATE OF MOST RECENT DOSE PRIOR TO FIRST EPISODE OF NEUTROPENIA 24/NO...
     Route: 050
     Dates: start: 20201124
  50. RITUXIMAB [Suspect]
     Active Substance: RITUXIMAB
     Dosage: UNK
     Route: 065
  51. RITUXIMAB [Suspect]
     Active Substance: RITUXIMAB
     Dosage: UNK; ;
     Route: 050
  52. RITUXIMAB [Suspect]
     Active Substance: RITUXIMAB
     Dosage: UNK
     Route: 065
  53. RITUXIMAB [Suspect]
     Active Substance: RITUXIMAB
     Dosage: UNK; ;
     Route: 050
  54. RITUXIMAB [Suspect]
     Active Substance: RITUXIMAB
     Route: 050
  55. RITUXIMAB [Suspect]
     Active Substance: RITUXIMAB
     Route: 065
  56. RITUXIMAB [Suspect]
     Active Substance: RITUXIMAB
     Dosage: UNK
     Route: 065
  57. RITUXIMAB [Suspect]
     Active Substance: RITUXIMAB
     Dosage: UNK; ;
     Route: 050
  58. RITUXIMAB [Suspect]
     Active Substance: RITUXIMAB
     Dosage: 100 MG
     Route: 065
     Dates: start: 20210126
  59. RITUXIMAB [Suspect]
     Active Substance: RITUXIMAB
     Dosage: 1000 MG
     Route: 065
     Dates: start: 20201215
  60. RITUXIMAB [Suspect]
     Active Substance: RITUXIMAB
     Dosage: 1000 MG
     Route: 065
     Dates: start: 20210302
  61. RITUXIMAB [Suspect]
     Active Substance: RITUXIMAB
     Dosage: 20 MG
     Route: 065
     Dates: start: 20210209
  62. RITUXIMAB [Suspect]
     Active Substance: RITUXIMAB
     Dosage: 2.5 MG, EVERY 3 WEEKS
     Route: 065
     Dates: start: 20201222
  63. RITUXIMAB [Suspect]
     Active Substance: RITUXIMAB
     Dosage: 50 MG/M2, TIW (DATE OF MOST RECENT DOSE PRIOR TO FIRST EPISODE OF NEUTROPENIA (TOTAL VOLUME 40 ML) 2
     Route: 065
     Dates: start: 20201124
  64. VALGANCICLOVIR [Suspect]
     Active Substance: VALGANCICLOVIR
     Indication: Cytomegalovirus viraemia
     Dosage: DURATION: 18 DAYS; ;
     Route: 050
     Dates: start: 20210426, end: 20210513
  65. VINCRISTINE [Suspect]
     Active Substance: VINCRISTINE
     Dosage: 9 MG/M2, THREE TIMES IN WEEK, TOTAL VOLUME: 50 ML DATE OF MOST RECENT DOSE PRIOR TO FIRST EPISODE OF
     Route: 050
     Dates: start: 20201124
  66. VINCRISTINE [Suspect]
     Active Substance: VINCRISTINE
     Dosage: 9 MG/M2, THREE TIMES IN WEEK, TOTAL VOLUME: 50 ML DATE OF MOST RECENT DOSE PRIOR TO FIRST EPISODE OF
     Route: 050
     Dates: start: 20201124
  67. VINCRISTINE [Suspect]
     Active Substance: VINCRISTINE
     Dosage: 9 MG/M2, THREE TIMES IN WEEK, TOTAL VOLUME: 50 ML DATE OF MOST RECENT DOSE PRIOR TO FIRST EPISODE OF
     Route: 050
     Dates: start: 20201124
  68. VINCRISTINE [Suspect]
     Active Substance: VINCRISTINE
     Indication: Diffuse large B-cell lymphoma
     Dosage: TOTAL VOLUME: 50 ML, DATE OF MOST RECENT DOSE PRIOR TO FIRST EPISODE OF NEUTROPENIA 24/NOV/2020; ...
     Route: 050
     Dates: start: 20201124
  69. VINCRISTINE [Suspect]
     Active Substance: VINCRISTINE
     Dosage: UNK
     Route: 065
  70. VINCRISTINE [Suspect]
     Active Substance: VINCRISTINE
     Dosage: UNK ROUTE OF ADMIN (FREE TEXT): UNKNOWN ROUTE
     Route: 065
  71. VINCRISTINE [Suspect]
     Active Substance: VINCRISTINE
     Dosage: UNK ROUTE OF ADMIN (FREE TEXT): UNKNOWN ROUTE
     Route: 065
  72. VINCRISTINE [Suspect]
     Active Substance: VINCRISTINE
     Dosage: UNK; ;
     Route: 050
  73. VINCRISTINE [Suspect]
     Active Substance: VINCRISTINE
     Dosage: UNK
     Route: 065
  74. VINCRISTINE [Suspect]
     Active Substance: VINCRISTINE
     Dosage: UNK
     Route: 065
  75. VINCRISTINE [Suspect]
     Active Substance: VINCRISTINE
     Dosage: UNK ROUTE OF ADMIN (FREE TEXT): UNKNOWN ROUTE
     Route: 065
  76. VINCRISTINE [Suspect]
     Active Substance: VINCRISTINE
     Dosage: UNK ROUTE OF ADMIN (FREE TEXT): UNKNOWN ROUTE
     Route: 065
  77. VINCRISTINE [Suspect]
     Active Substance: VINCRISTINE
     Dosage: UNK; ;
     Route: 050
  78. VINCRISTINE [Suspect]
     Active Substance: VINCRISTINE
     Dosage: 9 MG/M2, THREE TIMES IN WEEK, TOTAL VOLUME: 50 ML DATE OF MOST RECENT DOSE PRIOR TO FIRST EPISODE OF
     Route: 050
     Dates: start: 20201124
  79. VINCRISTINE [Suspect]
     Active Substance: VINCRISTINE
     Dosage: UNK
     Route: 065
  80. VINCRISTINE [Suspect]
     Active Substance: VINCRISTINE
     Dosage: UNK ROUTE OF ADMIN (FREE TEXT): UNKNOWN ROUTE
     Route: 065
  81. VINCRISTINE [Suspect]
     Active Substance: VINCRISTINE
     Dosage: UNK ROUTE OF ADMIN (FREE TEXT): UNKNOWN ROUTE
     Route: 065
  82. VINCRISTINE [Suspect]
     Active Substance: VINCRISTINE
     Dosage: UNK; ;
     Route: 050
  83. VINCRISTINE [Suspect]
     Active Substance: VINCRISTINE
     Dosage: UNK; ;
     Route: 050
  84. ALLOPURINOL [Concomitant]
     Active Substance: ALLOPURINOL
     Dosage: UNK ROUTE OF ADMIN (FREE TEXT): UNKNOWN ROUTE
     Route: 065
     Dates: start: 20201118
  85. ALLOPURINOL [Concomitant]
     Active Substance: ALLOPURINOL
     Dosage: UNK ROUTE OF ADMIN (FREE TEXT): UNKNOWN ROUTE
     Route: 065
     Dates: start: 20201118
  86. ALLOPURINOL [Concomitant]
     Active Substance: ALLOPURINOL
     Indication: Prophylaxis
     Dosage: UNK; ;
     Route: 050
     Dates: start: 20201118
  87. ALLOPURINOL [Concomitant]
     Active Substance: ALLOPURINOL
     Dosage: UNKUNK
     Route: 065
     Dates: start: 20201118
  88. ALLOPURINOL [Concomitant]
     Active Substance: ALLOPURINOL
     Dosage: UNKUNK
     Route: 065
     Dates: start: 20201118
  89. BENDAMUSTINE [Concomitant]
     Active Substance: BENDAMUSTINE
     Dosage: UNK
     Route: 065
  90. BENDAMUSTINE [Concomitant]
     Active Substance: BENDAMUSTINE
     Dosage: UNK; ;
     Route: 050
  91. BENDAMUSTINE [Concomitant]
     Active Substance: BENDAMUSTINE
     Dosage: UNKUNK
     Route: 065
  92. BENDAMUSTINE [Concomitant]
     Active Substance: BENDAMUSTINE
     Dosage: UNKUNK
     Route: 065
  93. BENDAMUSTINE [Concomitant]
     Active Substance: BENDAMUSTINE
     Indication: Product used for unknown indication
     Dosage: UNK
     Route: 065
  94. CHLORPHENIRAMINE MALEATE [Concomitant]
     Active Substance: CHLORPHENIRAMINE MALEATE
     Dosage: 10 MG;
     Route: 050
     Dates: start: 20210216, end: 20210216
  95. CHLORPHENIRAMINE MALEATE [Concomitant]
     Active Substance: CHLORPHENIRAMINE MALEATE
     Dosage: 10 MGUNK
     Route: 065
     Dates: start: 20210216, end: 20210216
  96. CHLORPHENIRAMINE MALEATE [Concomitant]
     Active Substance: CHLORPHENIRAMINE MALEATE
     Dosage: 10 MGUNK
     Route: 065
     Dates: start: 20210216, end: 20210216
  97. CHLORPHENIRAMINE MALEATE [Concomitant]
     Active Substance: CHLORPHENIRAMINE MALEATE
     Indication: Rash maculo-papular
     Dosage: DOSE LAST STUDY DRUG ADMIN PRIOR AE 1260 MG, START AD END DATE OF MOST RECENT DOSE OF STUDY DRUG PRI
     Route: 050
     Dates: start: 20201124, end: 20201124
  98. CHLORPHENIRAMINE MALEATE [Concomitant]
     Active Substance: CHLORPHENIRAMINE MALEATE
     Indication: Prophylaxis
     Dosage: DURATION: 1 DAY;
     Route: 050
     Dates: start: 20201215, end: 20201215
  99. CHLORPHENIRAMINE MALEATE [Concomitant]
     Active Substance: CHLORPHENIRAMINE MALEATE
     Dosage: DURATION: 1 DAY;
     Route: 050
     Dates: start: 20210119, end: 20210119
  100. CHLORPHENIRAMINE MALEATE [Concomitant]
     Active Substance: CHLORPHENIRAMINE MALEATE
     Dosage: DURATION: 1 DAY;
     Route: 050
     Dates: start: 20210126, end: 20210126
  101. CHLORPHENIRAMINE MALEATE [Concomitant]
     Active Substance: CHLORPHENIRAMINE MALEATE
     Dosage: DURATION: 1 DAY;
     Route: 050
     Dates: start: 20210209, end: 20210209
  102. CHLORPHENIRAMINE MALEATE [Concomitant]
     Active Substance: CHLORPHENIRAMINE MALEATE
     Dosage: DURATION: 1 DAY;
     Route: 050
     Dates: start: 20210302, end: 20210302
  103. CHLORPHENIRAMINE MALEATE [Concomitant]
     Active Substance: CHLORPHENIRAMINE MALEATE
     Dosage: DURATION: 1 DAY;
     Route: 050
     Dates: start: 20210309, end: 20210309
  104. CHLORPHENIRAMINE MALEATE [Concomitant]
     Active Substance: CHLORPHENIRAMINE MALEATE
     Dosage: 10 MG ROUTE OF ADMIN (FREE TEXT): UNKNOWN ROUTE
     Route: 065
     Dates: start: 20201217
  105. CHLORPHENIRAMINE MALEATE [Concomitant]
     Active Substance: CHLORPHENIRAMINE MALEATE
     Dosage: 10 MG ROUTE OF ADMIN (FREE TEXT): UNKNOWN ROUTE
     Route: 065
     Dates: start: 20201217
  106. CHLORPHENIRAMINE MALEATE [Concomitant]
     Active Substance: CHLORPHENIRAMINE MALEATE
     Dosage: 10 MG ROUTE OF ADMIN (FREE TEXT): UNKNOWN ROUTE
     Route: 065
     Dates: start: 20201217
  107. CHLORPHENIRAMINE MALEATE [Concomitant]
     Active Substance: CHLORPHENIRAMINE MALEATE
     Dosage: 10 MG ROUTE OF ADMIN (FREE TEXT): UNKNOWN ROUTE
     Route: 065
     Dates: start: 20201217
  108. CHLORPHENIRAMINE MALEATE [Concomitant]
     Active Substance: CHLORPHENIRAMINE MALEATE
     Dosage: 10 MG ROUTE OF ADMIN (FREE TEXT): UNKNOWN ROUTE
     Route: 065
     Dates: start: 20201217
  109. CHLORPHENIRAMINE MALEATE [Concomitant]
     Active Substance: CHLORPHENIRAMINE MALEATE
     Dosage: UNK ROUTE OF ADMIN (FREE TEXT): UNKNOWN ROUTE
     Route: 065
     Dates: start: 20201217
  110. CHLORPHENIRAMINE MALEATE [Concomitant]
     Active Substance: CHLORPHENIRAMINE MALEATE
     Dosage: UNK ROUTE OF ADMIN (FREE TEXT): UNKNOWN ROUTE
     Route: 065
     Dates: start: 20201217
  111. CHLORPHENIRAMINE MALEATE [Concomitant]
     Active Substance: CHLORPHENIRAMINE MALEATE
     Dosage: UNK; ;
     Route: 065
     Dates: start: 20201217
  112. CHLORPHENIRAMINE MALEATE [Concomitant]
     Active Substance: CHLORPHENIRAMINE MALEATE
     Dosage: DURATION: 1 DAY; ;
     Route: 050
     Dates: start: 20210323, end: 20210323
  113. CODEINE [Concomitant]
     Active Substance: CODEINE
     Dosage: 30 MG, AS NECESSARY ROUTE OF ADMIN (FREE TEXT): UNKNOWN ROUTE
     Route: 065
     Dates: start: 20201224, end: 20201224
  114. CODEINE [Concomitant]
     Active Substance: CODEINE
     Dosage: 30 MG, AS NECESSARY ROUTE OF ADMIN (FREE TEXT): UNKNOWN ROUTE
     Route: 065
     Dates: start: 20201224, end: 20201224
  115. CODEINE [Concomitant]
     Active Substance: CODEINE
     Dosage: 30 MG, AS NECESSARY ROUTE OF ADMIN (FREE TEXT): UNKNOWN ROUTE
     Route: 065
     Dates: start: 20201224, end: 20201224
  116. CODEINE [Concomitant]
     Active Substance: CODEINE
     Dosage: 30 MG, AS NECESSARY ROUTE OF ADMIN (FREE TEXT): UNKNOWN ROUTE
     Route: 065
     Dates: start: 20201224, end: 20201224
  117. CODEINE [Concomitant]
     Active Substance: CODEINE
     Dosage: 30 MG, AS NECESSARY ROUTE OF ADMIN (FREE TEXT): UNKNOWN ROUTE
     Route: 065
     Dates: start: 20201224, end: 20201224
  118. CODEINE [Concomitant]
     Active Substance: CODEINE
     Dosage: 30 MG, AS NECESSARY ROUTE OF ADMIN (FREE TEXT): UNKNOWN ROUTE
     Route: 065
     Dates: start: 20201224, end: 20201224
  119. CODEINE [Concomitant]
     Active Substance: CODEINE
     Dosage: 30 MG, AS NECESSARY ROUTE OF ADMIN (FREE TEXT): UNKNOWN ROUTE
     Route: 065
     Dates: start: 20201224, end: 20201224
  120. CODEINE [Concomitant]
     Active Substance: CODEINE
     Dosage: UNK ROUTE OF ADMIN (FREE TEXT): UNKNOWN ROUTE
     Route: 065
     Dates: start: 20201123
  121. CODEINE [Concomitant]
     Active Substance: CODEINE
     Dosage: UNK ROUTE OF ADMIN (FREE TEXT): UNKNOWN ROUTE
     Route: 065
     Dates: start: 20201123
  122. CODEINE [Concomitant]
     Active Substance: CODEINE
     Dosage: DURATION: 1 DAY; AS NECESSARY
     Route: 065
     Dates: start: 20201224, end: 20201224
  123. CODEINE [Concomitant]
     Active Substance: CODEINE
     Dosage: UNK
     Route: 065
     Dates: start: 20201123
  124. CODEINE [Concomitant]
     Active Substance: CODEINE
     Dosage: UNK
     Route: 065
     Dates: start: 20201123
  125. CODEINE [Concomitant]
     Active Substance: CODEINE
     Indication: Pain
     Dosage: UNK; ;
     Route: 050
     Dates: start: 20201123
  126. DEXAMETHASONE [Concomitant]
     Active Substance: DEXAMETHASONE
     Dosage: 20 MGUNK
     Route: 065
     Dates: start: 20210323, end: 20210323
  127. DEXAMETHASONE [Concomitant]
     Active Substance: DEXAMETHASONE
     Dosage: 20 MGUNK
     Route: 065
     Dates: start: 20210323, end: 20210323
  128. DEXAMETHASONE [Concomitant]
     Active Substance: DEXAMETHASONE
     Indication: Product used for unknown indication
     Dosage: DURATION: 1 DAY;
     Route: 050
     Dates: start: 20210209, end: 20210209
  129. DEXAMETHASONE [Concomitant]
     Active Substance: DEXAMETHASONE
     Dosage: DURATION: 1 DAY;
     Route: 050
     Dates: start: 20210119, end: 20210119
  130. DEXAMETHASONE [Concomitant]
     Active Substance: DEXAMETHASONE
     Dosage: DURATION: 1 DAY;
     Route: 050
     Dates: start: 20210302, end: 20210302
  131. DEXAMETHASONE [Concomitant]
     Active Substance: DEXAMETHASONE
     Dosage: DURATION: 1 DAY;
     Route: 050
     Dates: start: 20210323, end: 20210323
  132. FILGRASTIM [Concomitant]
     Active Substance: FILGRASTIM
     Dosage: UNK ROUTE OF ADMIN (FREE TEXT): UNKNOWN ROUTE
     Route: 065
     Dates: start: 20201129, end: 20201206
  133. FILGRASTIM [Concomitant]
     Active Substance: FILGRASTIM
     Dosage: UNK ROUTE OF ADMIN (FREE TEXT): UNKNOWN ROUTE
     Route: 065
     Dates: start: 20201129, end: 20201206
  134. FILGRASTIM [Concomitant]
     Active Substance: FILGRASTIM
     Dosage: UNK ROUTE OF ADMIN (FREE TEXT): UNKNOWN ROUTE
     Route: 065
     Dates: start: 20201220
  135. FILGRASTIM [Concomitant]
     Active Substance: FILGRASTIM
     Dosage: UNK ROUTE OF ADMIN (FREE TEXT): UNKNOWN ROUTE
     Route: 065
     Dates: start: 20201220
  136. FILGRASTIM [Concomitant]
     Active Substance: FILGRASTIM
     Dosage: UNK; ;
     Route: 050
     Dates: start: 20201220
  137. FILGRASTIM [Concomitant]
     Active Substance: FILGRASTIM
     Indication: Prophylaxis
     Dosage: UNK; ;
     Route: 050
     Dates: start: 20201129, end: 20201206
  138. FILGRASTIM [Concomitant]
     Active Substance: FILGRASTIM
     Dosage: UNKUNK
     Route: 065
     Dates: start: 20201129, end: 20201206
  139. FILGRASTIM [Concomitant]
     Active Substance: FILGRASTIM
     Dosage: UNKUNK
     Route: 065
     Dates: start: 20201129, end: 20201206
  140. OMEPRAZOLE [Concomitant]
     Active Substance: DONEPEZIL HYDROCHLORIDE\OMEPRAZOLE\OMEPRAZOLE MAGNESIUM
     Indication: Product used for unknown indication
     Dosage: UNK ROUTE OF ADMIN (FREE TEXT): UNKNOWN ROUTE
     Route: 065
     Dates: start: 20201118
  141. OMEPRAZOLE [Concomitant]
     Active Substance: DONEPEZIL HYDROCHLORIDE\OMEPRAZOLE\OMEPRAZOLE MAGNESIUM
     Dosage: UNK ROUTE OF ADMIN (FREE TEXT): UNKNOWN ROUTE
     Route: 065
     Dates: start: 20201118
  142. OMEPRAZOLE [Concomitant]
     Active Substance: DONEPEZIL HYDROCHLORIDE\OMEPRAZOLE\OMEPRAZOLE MAGNESIUM
     Indication: Gastrointestinal disorder prophylaxis
     Dosage: UNK; ;
     Route: 050
     Dates: start: 20201118
  143. OMEPRAZOLE [Concomitant]
     Active Substance: DONEPEZIL HYDROCHLORIDE\OMEPRAZOLE\OMEPRAZOLE MAGNESIUM
     Dosage: UNK ROUTE OF ADMIN (FREE TEXT): UNKNOWN ROUTE
     Route: 065
  144. OMEPRAZOLE [Concomitant]
     Active Substance: DONEPEZIL HYDROCHLORIDE\OMEPRAZOLE\OMEPRAZOLE MAGNESIUM
     Dosage: UNK ROUTE OF ADMIN (FREE TEXT): UNKNOWN ROUTE
     Route: 065
  145. OMEPRAZOLE [Concomitant]
     Active Substance: DONEPEZIL HYDROCHLORIDE\OMEPRAZOLE\OMEPRAZOLE MAGNESIUM
     Dosage: UNK ROUTE OF ADMIN (FREE TEXT): UNKNOWN ROUTE
     Route: 065
  146. OMEPRAZOLE [Concomitant]
     Active Substance: DONEPEZIL HYDROCHLORIDE\OMEPRAZOLE\OMEPRAZOLE MAGNESIUM
     Dosage: UNK ROUTE OF ADMIN (FREE TEXT): UNKNOWN ROUTE
     Route: 065
  147. OMEPRAZOLE [Concomitant]
     Active Substance: DONEPEZIL HYDROCHLORIDE\OMEPRAZOLE\OMEPRAZOLE MAGNESIUM
     Dosage: UNK ROUTE OF ADMIN (FREE TEXT): UNKNOWN ROUTE
     Route: 065
  148. OMEPRAZOLE [Concomitant]
     Active Substance: DONEPEZIL HYDROCHLORIDE\OMEPRAZOLE\OMEPRAZOLE MAGNESIUM
     Dosage: UNK ROUTE OF ADMIN (FREE TEXT): UNKNOWN ROUTE
     Route: 065
  149. OMEPRAZOLE [Concomitant]
     Active Substance: DONEPEZIL HYDROCHLORIDE\OMEPRAZOLE\OMEPRAZOLE MAGNESIUM
     Dosage: UNK ROUTE OF ADMIN (FREE TEXT): UNKNOWN ROUTE
     Route: 065
  150. OMEPRAZOLE [Concomitant]
     Active Substance: DONEPEZIL HYDROCHLORIDE\OMEPRAZOLE\OMEPRAZOLE MAGNESIUM
     Dosage: UNK ROUTE OF ADMIN (FREE TEXT): UNKNOWN ROUTE
     Route: 065
  151. ACETAMINOPHEN [Concomitant]
     Active Substance: ACETAMINOPHEN
     Dosage: DURATION: 1 DAY;
     Route: 050
     Dates: start: 20210126, end: 20210126
  152. ACETAMINOPHEN [Concomitant]
     Active Substance: ACETAMINOPHEN
     Indication: Prophylaxis
     Dosage: DURATION: 1 DAY;
     Route: 050
     Dates: start: 20201124, end: 20201124
  153. ACETAMINOPHEN [Concomitant]
     Active Substance: ACETAMINOPHEN
     Dosage: DURATION: 1 DAY;
     Route: 050
     Dates: start: 20201215, end: 20201215
  154. ACETAMINOPHEN [Concomitant]
     Active Substance: ACETAMINOPHEN
     Dosage: DURATION: 1 DAY;
     Route: 050
     Dates: start: 20210119, end: 20210119
  155. ACETAMINOPHEN [Concomitant]
     Active Substance: ACETAMINOPHEN
     Dosage: DURATION: 1 DAY;
     Route: 050
     Dates: start: 20210209, end: 20210209
  156. ACETAMINOPHEN [Concomitant]
     Active Substance: ACETAMINOPHEN
     Dosage: DURATION: 1 DAY;
     Route: 050
     Dates: start: 20210216, end: 20210216
  157. ACETAMINOPHEN [Concomitant]
     Active Substance: ACETAMINOPHEN
     Dosage: DURATION: 1 DAY;
     Route: 050
     Dates: start: 20210302, end: 20210302
  158. ACETAMINOPHEN [Concomitant]
     Active Substance: ACETAMINOPHEN
     Dosage: DURATION: 1 DAY;
     Route: 050
     Dates: start: 20210309, end: 20210309
  159. ACETAMINOPHEN [Concomitant]
     Active Substance: ACETAMINOPHEN
     Dosage: DURATION: 1 DAY;
     Route: 050
     Dates: start: 20210323, end: 20210323
  160. ACETAMINOPHEN [Concomitant]
     Active Substance: ACETAMINOPHEN
     Dosage: 100 MG
     Route: 048
     Dates: start: 20210126, end: 20210126
  161. ACETAMINOPHEN [Concomitant]
     Active Substance: ACETAMINOPHEN
     Dosage: 100 MG
     Route: 048
     Dates: start: 20210126, end: 20210126
  162. ACETAMINOPHEN [Concomitant]
     Active Substance: ACETAMINOPHEN
     Dosage: UNK ROUTE OF ADMIN (FREE TEXT): UNKNOWN ROUTE
     Route: 065
     Dates: start: 20201123
  163. ACETAMINOPHEN [Concomitant]
     Active Substance: ACETAMINOPHEN
     Dosage: UNK ROUTE OF ADMIN (FREE TEXT): UNKNOWN ROUTE
     Route: 065
     Dates: start: 20201123
  164. ACETAMINOPHEN [Concomitant]
     Active Substance: ACETAMINOPHEN
     Dosage: 1000 MGUNK
     Route: 065
     Dates: start: 20210309, end: 20210309
  165. ACETAMINOPHEN [Concomitant]
     Active Substance: ACETAMINOPHEN
     Dosage: 1000 MGUNK
     Route: 065
     Dates: start: 20210309, end: 20210309
  166. ACETAMINOPHEN [Concomitant]
     Active Substance: ACETAMINOPHEN
     Dosage: 1000 MG
     Route: 050
     Dates: start: 20210126, end: 20210126
  167. ACETAMINOPHEN [Concomitant]
     Active Substance: ACETAMINOPHEN
     Dosage: 1000 MG
     Route: 050
     Dates: start: 20210126, end: 20210126
  168. ACETAMINOPHEN [Concomitant]
     Active Substance: ACETAMINOPHEN
     Dosage: UNK; ;
     Route: 050
     Dates: start: 20201123
  169. PREDNISOLONE [Concomitant]
     Active Substance: PREDNISOLONE
     Dosage: UNK
     Route: 048
     Dates: start: 20201118, end: 20201122
  170. PREDNISOLONE [Concomitant]
     Active Substance: PREDNISOLONE
     Indication: Product used for unknown indication
     Dosage: UNK
     Route: 065
  171. SARS-CoV-2 vaccine [Concomitant]
     Indication: Product used for unknown indication
     Dosage: UNK
     Route: 065
  172. SENNA [Concomitant]
     Active Substance: SENNA LEAF\SENNOSIDES\SENNOSIDES A AND B
     Dosage: UNK ROUTE OF ADMIN (FREE TEXT): UNKNOWN ROUTE
     Route: 065
     Dates: start: 20201124
  173. SENNA [Concomitant]
     Active Substance: SENNA LEAF\SENNOSIDES\SENNOSIDES A AND B
     Dosage: UNK ROUTE OF ADMIN (FREE TEXT): UNKNOWN ROUTE
     Route: 065
     Dates: start: 20201124
  174. SENNA [Concomitant]
     Active Substance: SENNA LEAF\SENNOSIDES\SENNOSIDES A AND B
     Indication: Constipation
     Dosage: UNK; ;
     Route: 050
     Dates: start: 20201124
  175. SENNA [Concomitant]
     Active Substance: SENNA LEAF\SENNOSIDES\SENNOSIDES A AND B
     Dosage: UNKUNK
     Route: 065
     Dates: start: 20201124
  176. SENNA [Concomitant]
     Active Substance: SENNA LEAF\SENNOSIDES\SENNOSIDES A AND B
     Dosage: UNKUNK
     Route: 065
     Dates: start: 20201124
  177. SENOKOT [Concomitant]
     Active Substance: SENNOSIDES
     Dosage: UNK
     Route: 050
     Dates: start: 20201124
  178. SENOKOT [Concomitant]
     Active Substance: SENNOSIDES
     Dosage: UNK
     Route: 050
     Dates: start: 20201124
  179. SENOKOT [Concomitant]
     Active Substance: SENNOSIDES
     Dosage: UNK
     Route: 065
  180. SENOKOT [Concomitant]
     Active Substance: SENNOSIDES
     Dosage: UNK
     Route: 065
  181. SENOKOT [Concomitant]
     Active Substance: SENNOSIDES
     Dosage: UNK, SENNA PODS POWDERED ROUTE OF ADMIN (FREE TEXT): UNKNOWN ROUTE
     Route: 065
  182. SENOKOT [Concomitant]
     Active Substance: SENNOSIDES
     Dosage: UNK, SENNA PODS POWDERED ROUTE OF ADMIN (FREE TEXT): UNKNOWN ROUTE
     Route: 065
  183. SENOKOT [Concomitant]
     Active Substance: SENNOSIDES
     Dosage: UNK, SENNA PODS POWDERED ROUTE OF ADMIN (FREE TEXT): UNKNOWN ROUTE
     Route: 065
  184. SENOKOT [Concomitant]
     Active Substance: SENNOSIDES
     Dosage: UNK, SENNA PODS POWDERED ROUTE OF ADMIN (FREE TEXT): UNKNOWN ROUTE
     Route: 065
  185. SENOKOT [Concomitant]
     Active Substance: SENNOSIDES
     Dosage: UNK, SENNA PODS POWDERED ROUTE OF ADMIN (FREE TEXT): UNKNOWN ROUTE
     Route: 065
  186. SENOKOT [Concomitant]
     Active Substance: SENNOSIDES
     Indication: Constipation
     Route: 065

REACTIONS (6)
  - Neutropenia [Recovered/Resolved]
  - Neutropenia [Recovered/Resolved]
  - Neutropenia [Recovered/Resolved]
  - Neutropenia [Recovered/Resolved]
  - Product use in unapproved indication [Unknown]
  - Off label use [Unknown]

NARRATIVE: CASE EVENT DATE: 20201124
